FAERS Safety Report 5016420-0 (Version None)
Quarter: 2006Q2

REPORT INFORMATION
  Report Type: 
  Country: None (occurrence: None)
  Receive Date: 20060602
  Receipt Date: 20060519
  Transmission Date: 20061013
  Serious: Yes (Life-Threatening, Hospitalization)
  Sender: FDA-Public Use
  Company Number: 2006UW09918

PATIENT
  Age: 72 Year
  Sex: Male

DRUGS (6)
  1. TOPROL-XL [Suspect]
     Route: 048
  2. AVELOX [Suspect]
     Indication: PROSTATITIS
     Route: 048
     Dates: start: 20021021
  3. ALTACE [Concomitant]
  4. LIPITOR [Concomitant]
  5. PREVACID [Concomitant]
  6. VALIUM [Concomitant]

REACTIONS (6)
  - BLOOD PRESSURE DECREASED [None]
  - CONSCIOUSNESS FLUCTUATING [None]
  - DRUG HYPERSENSITIVITY [None]
  - HYPERSENSITIVITY [None]
  - RESPIRATORY ARREST [None]
  - URINARY INCONTINENCE [None]
